FAERS Safety Report 4530571-6 (Version None)
Quarter: 2004Q4

REPORT INFORMATION
  Report Type: 
  Country: None (occurrence: None)
  Receive Date: 20041217
  Receipt Date: 20041217
  Transmission Date: 20050328
  Serious: Yes (Hospitalization)
  Sender: FDA-Public Use
  Company Number: None

PATIENT
  Age: 34 Year
  Sex: Female
  Weight: 88.36 kg

DRUGS (1)
  1. THEOPHYLLINE [Suspect]
     Indication: ASTHMA
     Dosage: 300MG  TID ORAL
     Route: 048
     Dates: start: 19851001, end: 20041020

REACTIONS (6)
  - DIZZINESS [None]
  - DRUG LEVEL ABOVE THERAPEUTIC [None]
  - HEART RATE INCREASED [None]
  - OVERDOSE [None]
  - PALPITATIONS [None]
  - REFUSAL OF TREATMENT BY PATIENT [None]
